FAERS Safety Report 22330711 (Version 1)
Quarter: 2023Q2

REPORT INFORMATION
  Report Type: Report from Study
  Country: US (occurrence: US)
  Receive Date: 20230517
  Receipt Date: 20230517
  Transmission Date: 20230722
  Serious: Yes (Other)
  Sender: FDA-Public Use
  Company Number: US-ABBVIE-4765433

PATIENT
  Age: 59 Year
  Sex: Female

DRUGS (1)
  1. RINVOQ [Suspect]
     Active Substance: UPADACITINIB
     Indication: Eczema
     Dosage: ER/ FORM STRENGTH: 15 MILLIGRAM
     Route: 048
     Dates: start: 20230204

REACTIONS (1)
  - Skin operation [Recovering/Resolving]

NARRATIVE: CASE EVENT DATE: 20230418
